FAERS Safety Report 9763017 (Version 1)
Quarter: 2013Q4

REPORT INFORMATION
  Report Type: Spontaneous
  Country: US (occurrence: US)
  Receive Date: 20131216
  Receipt Date: 20131216
  Transmission Date: 20140711
  Serious: No
  Sender: FDA-Public Use
  Company Number: US-BIOGENIDEC-2013BI108471

PATIENT
  Age: 46 Year
  Sex: Female

DRUGS (2)
  1. TECFIDERA [Suspect]
     Indication: PRODUCT USED FOR UNKNOWN INDICATION
     Dates: start: 201309, end: 201309
  2. AMPYRA [Concomitant]
     Route: 048
     Dates: start: 20130913, end: 20131003

REACTIONS (2)
  - Hypersensitivity [Recovered/Resolved]
  - Erythema [Recovered/Resolved]
